FAERS Safety Report 17376788 (Version 1)
Quarter: 2020Q1

REPORT INFORMATION
  Report Type: Spontaneous
  Country: US (occurrence: US)
  Receive Date: 20200205
  Receipt Date: 20200205
  Transmission Date: 20200409
  Serious: No
  Sender: FDA-Public Use
  Company Number: None

PATIENT
  Sex: Female
  Weight: 76.23 kg

DRUGS (4)
  1. VERAPAMIL 120MG [Concomitant]
  2. PREGABALIN 100MG [Concomitant]
     Active Substance: PREGABALIN
  3. LOVASTATIN 10MG [Concomitant]
  4. CAPECITABINE. [Suspect]
     Active Substance: CAPECITABINE
     Indication: GASTRIC CANCER
     Route: 048
     Dates: start: 20191213, end: 20200205

REACTIONS (2)
  - Toxicity to various agents [None]
  - Radiation sickness syndrome [None]
